FAERS Safety Report 14407955 (Version 1)
Quarter: 2018Q1

REPORT INFORMATION
  Report Type: Spontaneous
  Country: US (occurrence: US)
  Receive Date: 20180118
  Receipt Date: 20180118
  Transmission Date: 20180509
  Serious: No
  Sender: FDA-Public Use
  Company Number: US-DEPOMED, INC.-US-2017DEP002140

PATIENT

DRUGS (7)
  1. PHENERGAN [Concomitant]
     Active Substance: PROMETHAZINE HYDROCHLORIDE
     Indication: IMPAIRED GASTRIC EMPTYING
     Dosage: 25 MG, BID
     Route: 048
  2. ORPHENADRINE [Concomitant]
     Active Substance: ORPHENADRINE
     Indication: MUSCLE RELAXANT THERAPY
     Dosage: UNK
     Dates: start: 201701
  3. CLONIDINE. [Concomitant]
     Active Substance: CLONIDINE
     Indication: HYPERTENSION
  4. VISTARIL                           /00058402/ [Concomitant]
     Active Substance: HYDROXYZINE HYDROCHLORIDE
     Indication: ANXIETY
     Dosage: 25 MG, BID
     Route: 048
  5. NEXIUM [Concomitant]
     Active Substance: ESOMEPRAZOLE MAGNESIUM
     Indication: IMPAIRED GASTRIC EMPTYING
     Dosage: UNK, QD
  6. LISINOPRIL. [Concomitant]
     Active Substance: LISINOPRIL
     Indication: HYPERTENSION
     Dosage: UNK
     Dates: start: 2017
  7. NUCYNTA [Suspect]
     Active Substance: TAPENTADOL HYDROCHLORIDE
     Indication: PAIN
     Dosage: 100 MG, QID, AS NEEDED
     Route: 048
     Dates: start: 2013, end: 20171026

REACTIONS (4)
  - Drug dose titration not performed [Unknown]
  - Road traffic accident [Recovered/Resolved]
  - Pain [Unknown]
  - Drug withdrawal syndrome [Recovered/Resolved]

NARRATIVE: CASE EVENT DATE: 201703
